FAERS Safety Report 12779083 (Version 1)
Quarter: 2016Q3

REPORT INFORMATION
  Report Type: Spontaneous
  Country: US (occurrence: US)
  Receive Date: 20160921
  Receipt Date: 20160921
  Transmission Date: 20161109
  Serious: Yes (Hospitalization)
  Sender: FDA-Public Use
  Company Number: None

PATIENT
  Age: 70 Year
  Sex: Male
  Weight: 99.3 kg

DRUGS (1)
  1. METHYLPREDNISOLONE. [Suspect]
     Active Substance: METHYLPREDNISOLONE
     Indication: INFLAMMATION
     Dosage: MG EVERY DAY PO
     Route: 048
     Dates: start: 20160906, end: 20160913

REACTIONS (1)
  - Mental status changes [None]

NARRATIVE: CASE EVENT DATE: 20160913
